FAERS Safety Report 11597680 (Version 1)
Quarter: 2015Q3

REPORT INFORMATION
  Report Type: Spontaneous
  Country: US (occurrence: US)
  Receive Date: 20150916
  Receipt Date: 20150916
  Transmission Date: 20151125
  Serious: No
  Sender: FDA-Public Use
  Company Number: US-ELI_LILLY_AND_COMPANY-US200801002500

PATIENT
  Age: 92 Year
  Sex: Female

DRUGS (3)
  1. LIDODERM [Concomitant]
     Active Substance: LIDOCAINE
     Indication: SPINAL COLUMN STENOSIS
  2. FENTANYL. [Concomitant]
     Active Substance: FENTANYL
     Indication: SPINAL COLUMN STENOSIS
  3. FORTEO [Suspect]
     Active Substance: TERIPARATIDE
     Dates: start: 20080110

REACTIONS (4)
  - Pain in extremity [Not Recovered/Not Resolved]
  - Abdominal pain upper [Not Recovered/Not Resolved]
  - Back pain [Recovered/Resolved]
  - Headache [Not Recovered/Not Resolved]

NARRATIVE: CASE EVENT DATE: 200801
